FAERS Safety Report 13862900 (Version 1)
Quarter: 2017Q3

REPORT INFORMATION
  Report Type: Report from Study
  Country: None (occurrence: AR)
  Receive Date: 20170814
  Receipt Date: 20170814
  Transmission Date: 20171127
  Serious: Yes (Hospitalization, Other)
  Sender: FDA-Public Use
  Company Number: AR-ABBVIE-17K-007-2070034-00

PATIENT
  Age: 75 Year
  Sex: Female

DRUGS (1)
  1. HUMIRA [Suspect]
     Active Substance: ADALIMUMAB
     Indication: RHEUMATOID ARTHRITIS
     Route: 058
     Dates: start: 20110101

REACTIONS (4)
  - Intestinal ulcer [Recovering/Resolving]
  - Frequent bowel movements [Unknown]
  - Intestinal ulcer perforation [Unknown]
  - Haematochezia [Unknown]

NARRATIVE: CASE EVENT DATE: 20170723
